FAERS Safety Report 8307075-8 (Version None)
Quarter: 2012Q2

REPORT INFORMATION
  Report Type: 
  Country: None (occurrence: None)
  Receive Date: 20120424
  Receipt Date: 20120419
  Transmission Date: 20120825
  Serious: Yes (Death)
  Sender: FDA-Public Use
  Company Number: PHEH2012US008492

PATIENT
  Age: 47 Year
  Sex: Female

DRUGS (8)
  1. ASPIRIN [Concomitant]
  2. NEURONTIN [Concomitant]
  3. HYDROXYUREA [Concomitant]
  4. GLEEVEC [Suspect]
     Indication: CHRONIC MYELOID LEUKAEMIA
     Dosage: 400 MG, DAILY
     Route: 048
     Dates: start: 20090101, end: 20120401
  5. ALLOPURINOL [Concomitant]
  6. REGLAN [Concomitant]
  7. METOPROLOL TARTRATE [Concomitant]
  8. PROTONIX [Concomitant]
     Dosage: UNK UKN, UNK

REACTIONS (1)
  - DEATH [None]
